FAERS Safety Report 18073277 (Version 1)
Quarter: 2020Q3

REPORT INFORMATION
  Report Type: Spontaneous
  Country: US (occurrence: US)
  Receive Date: 20200727
  Receipt Date: 20200727
  Transmission Date: 20201103
  Serious: Yes (Other)
  Sender: FDA-Public Use
  Company Number: US-BAYER-2020-149940

PATIENT
  Sex: Female

DRUGS (2)
  1. BAYER LOW DOSE [Suspect]
     Active Substance: ASPIRIN
     Dosage: 81 MG, UNK [BABY ASPIRIN]
     Route: 048
  2. XARELTO [Suspect]
     Active Substance: RIVAROXABAN
     Indication: THROMBOSIS
     Dosage: 15 MG, BID
     Route: 048
     Dates: start: 20200717

REACTIONS (3)
  - Thrombosis [Unknown]
  - Cellulitis [Unknown]
  - Thrombophlebitis [Unknown]

NARRATIVE: CASE EVENT DATE: 20200720
